FAERS Safety Report 8915059 (Version 2)
Quarter: 2013Q1

REPORT INFORMATION
  Report Type: Spontaneous
  Country: CH (occurrence: CH)
  Receive Date: 20121116
  Receipt Date: 20130117
  Transmission Date: 20140127
  Serious: Yes (Other)
  Sender: FDA-Public Use
  Company Number: CH-GLAXOSMITHKLINE-B0845492A

PATIENT
  Age: 57 None
  Sex: Male

DRUGS (8)
  1. AVAMYS [Suspect]
     Indication: NASAL POLYPS
     Dosage: 1PUFF PER DAY
     Route: 045
  2. MEPHADOLOR [Concomitant]
  3. ACETYLCYSTEIN [Concomitant]
  4. OMEPRAZOL [Concomitant]
  5. TRUXAL [Concomitant]
  6. CRESTOR [Concomitant]
  7. SPIRIVA [Concomitant]
  8. FLUTINASE [Concomitant]
     Indication: NASAL POLYPS
     Dates: start: 1996

REACTIONS (2)
  - Spinal fracture [Not Recovered/Not Resolved]
  - Bone density decreased [Not Recovered/Not Resolved]
